FAERS Safety Report 18596306 (Version 1)
Quarter: 2020Q4

REPORT INFORMATION
  Report Type: Spontaneous
  Country: CA (occurrence: CA)
  Receive Date: 20201209
  Receipt Date: 20201209
  Transmission Date: 20210114
  Serious: Yes (Other)
  Sender: FDA-Public Use
  Company Number: CA-TEVA-2020-CA-1850338

PATIENT
  Age: 33 Year
  Sex: Female

DRUGS (5)
  1. ESTRADIOL. [Concomitant]
     Active Substance: ESTRADIOL
     Dosage: 4 MILLIGRAM DAILY;
  2. PRENATAL [Concomitant]
     Active Substance: VITAMINS
  3. ACT-PROGESTERONE [Suspect]
     Active Substance: PROGESTERONE
     Indication: HORMONE THERAPY
  4. ACT-PROGESTERONE [Suspect]
     Active Substance: PROGESTERONE
     Indication: IN VITRO FERTILISATION
     Dosage: 50 MILLIGRAM DAILY;
     Route: 030
     Dates: start: 20201015, end: 20201123
  5. ASA [Concomitant]
     Active Substance: ASPIRIN

REACTIONS (4)
  - Maternal exposure during pregnancy [Unknown]
  - Product storage error [Unknown]
  - Hormone therapy [Unknown]
  - Abortion spontaneous [Unknown]

NARRATIVE: CASE EVENT DATE: 2020
